FAERS Safety Report 6192760-7 (Version None)
Quarter: 2009Q2

REPORT INFORMATION
  Report Type: 
  Country: None (occurrence: None)
  Receive Date: 20090518
  Receipt Date: 20090511
  Transmission Date: 20091009
  Serious: Yes (Hospitalization, Other)
  Sender: FDA-Public Use
  Company Number: US-TEVA-194623USA

PATIENT
  Age: 79 Year
  Sex: Male

DRUGS (7)
  1. AMLODIPINE BESYLATE,2.5 MG (BASE) + 5 MG (BASE) + 10 MG (BASE) TABLETS [Suspect]
     Dosage: 2.5 MG/DAY, INCREASED TO 10 MG/DAY ON DAY 4
  2. ASPIRIN [Concomitant]
  3. CARVEDILOL [Concomitant]
  4. FUROSEMIDE [Concomitant]
  5. SIMVASTATIN [Concomitant]
  6. SPIRONOLACTONE [Concomitant]
  7. VALSARTAN [Concomitant]

REACTIONS (1)
  - MYOCLONUS [None]
